FAERS Safety Report 18092723 (Version 3)
Quarter: 2021Q1

REPORT INFORMATION
  Report Type: Spontaneous
  Country: IT (occurrence: IT)
  Receive Date: 20200730
  Receipt Date: 20210121
  Transmission Date: 20210419
  Serious: Yes (Death)
  Sender: FDA-Public Use
  Company Number: IT-PFIZER INC-2020286970

PATIENT
  Age: 48 Year
  Sex: Female

DRUGS (6)
  1. PROPRANOLOL [Suspect]
     Active Substance: PROPRANOLOL HYDROCHLORIDE
     Indication: MENTAL DISORDER
     Dosage: 40 MG
  2. HALOPERIDOL. [Suspect]
     Active Substance: HALOPERIDOL
     Indication: MENTAL DISORDER
     Dosage: 10 DROP, 2X/DAY
  3. CLONAZEPAM. [Suspect]
     Active Substance: CLONAZEPAM
     Indication: MENTAL DISORDER
     Dosage: 20 DROP, 3X/DAY
  4. GABAPENTIN. [Suspect]
     Active Substance: GABAPENTIN
     Dosage: 300 MG, 2X/DAY (TABLETS)
  5. CLOTIAPINE [Suspect]
     Active Substance: CLOTHIAPINE
     Indication: MENTAL DISORDER
     Dosage: 20 DROP, AS NEEDED
  6. FLUVOXAMINE [Suspect]
     Active Substance: FLUVOXAMINE
     Indication: MENTAL DISORDER
     Dosage: 150 MG

REACTIONS (3)
  - Poisoning [Fatal]
  - Overdose [Fatal]
  - Asphyxia [Fatal]
